FAERS Safety Report 3718422 (Version 3)
Quarter: 2016Q2

REPORT INFORMATION
  Report Type: Spontaneous
  Country: ES (occurrence: ES)
  Receive Date: 20011004
  Receipt Date: 20160412
  Transmission Date: 20160815
  Serious: Yes (Death)
  Sender: FDA-Public Use
  Company Number: PHBS2001ES09587

PATIENT
  Age: 44 Year
  Sex: Male

DRUGS (4)
  1. AZATHIOPRINE. [Suspect]
     Active Substance: AZATHIOPRINE
     Indication: RENAL TRANSPLANT
     Dosage: 50 MG, QD
     Route: 065
  2. AZATHIOPRINE. [Suspect]
     Active Substance: AZATHIOPRINE
     Indication: IMMUNOSUPPRESSANT DRUG THERAPY
  3. CICLOSPORIN [Suspect]
     Active Substance: CYCLOSPORINE
     Indication: RENAL TRANSPLANT
     Dosage: 10 MG/KG, QD
     Route: 065
  4. CICLOSPORIN [Suspect]
     Active Substance: CYCLOSPORINE
     Indication: IMMUNOSUPPRESSANT DRUG THERAPY

REACTIONS (13)
  - Jaundice [Fatal]
  - Cytomegalovirus hepatitis [Fatal]
  - Malaise [Fatal]
  - Sepsis [Fatal]
  - Hepatic failure [Fatal]
  - Hepatitis B [Fatal]
  - Pyrexia [Fatal]
  - Pneumocystis jirovecii pneumonia [Fatal]
  - Interstitial lung disease [Fatal]
  - Hepatic encephalopathy [Fatal]
  - Hepatitis cholestatic [Fatal]
  - Leukopenia [Fatal]
  - Hepatic fibrosis [Fatal]
